FAERS Safety Report 12130288 (Version 2)
Quarter: 2016Q1

REPORT INFORMATION
  Report Type: Report from Study
  Country: US (occurrence: US)
  Receive Date: 20160229
  Receipt Date: 20160328
  Transmission Date: 20160526
  Serious: Yes (Death, Hospitalization)
  Sender: FDA-Public Use
  Company Number: US-AMGEN-USASL2016024383

PATIENT
  Age: 72 Year
  Sex: Male

DRUGS (3)
  1. KYPROLIS [Suspect]
     Active Substance: CARFILZOMIB
     Indication: PLASMA CELL MYELOMA
     Dosage: 2 TIMES/WK
     Route: 065
     Dates: start: 20160107
  2. DEXAMETHASONE. [Concomitant]
     Active Substance: DEXAMETHASONE
     Dosage: 2 TIMES/WK
  3. CYTOXAN [Concomitant]
     Active Substance: CYCLOPHOSPHAMIDE
     Dosage: 2 TIMES/WK

REACTIONS (3)
  - White blood cell count decreased [Unknown]
  - Confusional state [Recovering/Resolving]
  - Death [Fatal]

NARRATIVE: CASE EVENT DATE: 201602
